FAERS Safety Report 8947492 (Version 3)
Quarter: 2014Q1

REPORT INFORMATION
  Report Type: Spontaneous
  Country: US (occurrence: US)
  Receive Date: 20121204
  Receipt Date: 20140102
  Transmission Date: 20141002
  Serious: Yes (Other)
  Sender: FDA-Public Use
  Company Number: US-009507513-1212USA001135

PATIENT
  Sex: Female

DRUGS (6)
  1. FOSAMAX [Suspect]
     Indication: OSTEOPOROSIS
     Route: 048
  2. FOSAMAX [Suspect]
     Indication: OSTEOPOROSIS
     Route: 048
  3. CALCIUM (UNSPECIFIED) [Concomitant]
     Dosage: 1200 MG, UNK
     Dates: start: 1990
  4. OMEGA-3 MARINE TRIGLYCERIDES [Concomitant]
     Dosage: 100 MG, UNK
     Dates: start: 1990
  5. NIACIN [Concomitant]
     Dosage: 500 MG, UNK
     Dates: start: 1990
  6. VITAMINS (UNSPECIFIED) [Concomitant]
     Dosage: UNK
     Dates: start: 1990

REACTIONS (10)
  - Femur fracture [Unknown]
  - Breast cancer [Unknown]
  - Low turnover osteopathy [Unknown]
  - Endodontic procedure [Unknown]
  - Rib fracture [Unknown]
  - Rib fracture [Unknown]
  - Rib fracture [Unknown]
  - Cough [Unknown]
  - Hypertension [Unknown]
  - Blood cholesterol increased [Unknown]
